FAERS Safety Report 7082108-8 (Version None)
Quarter: 2010Q4

REPORT INFORMATION
  Report Type: 
  Country: None (occurrence: None)
  Receive Date: 20101103
  Receipt Date: 20101027
  Transmission Date: 20110411
  Serious: No
  Sender: FDA-Public Use
  Company Number: US-PFIZER INC-2010137237

PATIENT
  Sex: Female
  Weight: 82.1 kg

DRUGS (3)
  1. LYRICA [Suspect]
     Indication: SPINAL DISORDER
     Dosage: 75 MG, 2X/DAY
     Route: 048
     Dates: start: 20101027
  2. PLAVIX [Concomitant]
     Dosage: UNK
  3. DILANTIN [Concomitant]
     Dosage: UNK

REACTIONS (5)
  - DEPRESSED MOOD [None]
  - DIZZINESS [None]
  - FEELING ABNORMAL [None]
  - HYPERSOMNIA [None]
  - VISION BLURRED [None]
